FAERS Safety Report 7008802-2 (Version None)
Quarter: 2010Q3

REPORT INFORMATION
  Report Type: 
  Country: None (occurrence: None)
  Receive Date: 20100922
  Receipt Date: 20100811
  Transmission Date: 20110219
  Serious: Yes (Other)
  Sender: FDA-Public Use
  Company Number: US-BAXTER-2009BH016514

PATIENT
  Age: 73 Year
  Sex: Male
  Weight: 76 kg

DRUGS (8)
  1. HEPARIN SODIUM INJECTION [Suspect]
     Indication: ACUTE MYOCARDIAL INFARCTION
     Route: 040
     Dates: start: 20071022, end: 20071025
  2. HEPARIN SODIUM 5,000 UNITS IN DEXTROSE 5% [Suspect]
     Indication: ACUTE MYOCARDIAL INFARCTION
     Route: 041
     Dates: start: 20071022, end: 20071025
  3. ATENOLOL [Concomitant]
     Indication: PRODUCT USED FOR UNKNOWN INDICATION
     Route: 065
  4. ASPIRIN [Concomitant]
     Indication: PRODUCT USED FOR UNKNOWN INDICATION
     Route: 065
  5. CALCIUM CITRATE [Concomitant]
     Indication: PRODUCT USED FOR UNKNOWN INDICATION
     Route: 065
  6. PRILOSEC [Concomitant]
     Indication: PRODUCT USED FOR UNKNOWN INDICATION
     Route: 065
  7. TYLENOL [Concomitant]
     Indication: PRODUCT USED FOR UNKNOWN INDICATION
     Route: 065
  8. ALEVE                              /01515801/ [Concomitant]
     Indication: PRODUCT USED FOR UNKNOWN INDICATION
     Route: 065

REACTIONS (5)
  - ANAEMIA [None]
  - HAEMORRHAGE [None]
  - PELVIC HAEMATOMA [None]
  - RENAL FAILURE [None]
  - THROMBOSIS [None]
